APPROVED DRUG PRODUCT: DECITABINE
Active Ingredient: DECITABINE
Strength: 50MG/VIAL
Dosage Form/Route: INJECTABLE;INTRAVENOUS
Application: A203131 | Product #001 | TE Code: AP
Applicant: DR REDDYS LABORATORIES LTD
Approved: Jul 11, 2013 | RLD: No | RS: Yes | Type: RX